FAERS Safety Report 4494876-X (Version None)
Quarter: 2004Q4

REPORT INFORMATION
  Report Type: 
  Country: None (occurrence: None)
  Receive Date: 20041103
  Receipt Date: 20041021
  Transmission Date: 20050328
  Serious: Yes (Hospitalization)
  Sender: FDA-Public Use
  Company Number: HQWYE018425OCT04

PATIENT
  Age: 34 Year
  Sex: Female
  Weight: 72.19 kg

DRUGS (6)
  1. EFFEXOR XR [Suspect]
     Indication: PANIC DISORDER
     Dosage: SEE IMAGE
     Route: 048
     Dates: start: 20041014, end: 20041017
  2. EFFEXOR XR [Suspect]
     Indication: PANIC DISORDER
     Dosage: SEE IMAGE
     Route: 048
     Dates: start: 20041018, end: 20041018
  3. EFFEXOR XR [Suspect]
     Indication: PANIC DISORDER
     Dosage: SEE IMAGE
     Route: 048
     Dates: start: 20041019
  4. XANAX [Concomitant]
  5. PRILOSEC [Concomitant]
  6. SYNTHROID [Concomitant]

REACTIONS (6)
  - CONVULSION [None]
  - FEELING HOT [None]
  - HEADACHE [None]
  - PARAESTHESIA [None]
  - PLATELET COUNT INCREASED [None]
  - SKIN BURNING SENSATION [None]
